FAERS Safety Report 12487509 (Version 1)
Quarter: 2016Q2

REPORT INFORMATION
  Report Type: Spontaneous
  Country: US (occurrence: None)
  Receive Date: 20160621
  Receipt Date: 20160621
  Transmission Date: 20160815
  Serious: Yes (Other)
  Sender: FDA-Public Use
  Company Number: None

PATIENT
  Age: 71 Year
  Sex: Male
  Weight: 135.4 kg

DRUGS (1)
  1. ALBUTEROL/IPRATROPIUM [Suspect]
     Active Substance: ALBUTEROL\IPRATROPIUM
     Indication: INHALATION THERAPY
     Route: 055
     Dates: start: 20160202, end: 20160206

REACTIONS (1)
  - Urinary retention [None]

NARRATIVE: CASE EVENT DATE: 20160205
